FAERS Safety Report 4353576-7 (Version None)
Quarter: 2004Q2

REPORT INFORMATION
  Report Type: 
  Country: None (occurrence: None)
  Receive Date: 20040430
  Receipt Date: 20030901
  Transmission Date: 20050107
  Serious: Yes (Disabling)
  Sender: FDA-Public Use
  Company Number: 2003AP03075

PATIENT
  Age: 68 Year
  Sex: Male

DRUGS (2)
  1. XYLOCAINE [Suspect]
     Indication: ARRHYTHMIA
     Dosage: 1000 MG DAILY IVD
     Route: 041
     Dates: start: 20030811, end: 20030811
  2. XYLOCAINE [Suspect]
     Indication: ARRHYTHMIA
     Dosage: 10 ML OVER 4-5 HOURS
     Dates: start: 20030812, end: 20030812

REACTIONS (3)
  - CONVULSION [None]
  - MEDICATION ERROR [None]
  - OVERDOSE [None]
